FAERS Safety Report 12167938 (Version 1)
Quarter: 2016Q1

REPORT INFORMATION
  Report Type: Spontaneous
  Country: US (occurrence: None)
  Receive Date: 20160309
  Receipt Date: 20160309
  Transmission Date: 20160526
  Serious: Yes (Hospitalization)
  Sender: FDA-Public Use
  Company Number: None

PATIENT
  Sex: Male
  Weight: 103.4 kg

DRUGS (15)
  1. OCTREOTIDE. [Concomitant]
     Active Substance: OCTREOTIDE
  2. METOCLOPRAMID [Concomitant]
     Active Substance: METOCLOPRAMIDE
  3. SIPRONOLACTONE [Concomitant]
  4. LASIX [Concomitant]
     Active Substance: FUROSEMIDE
  5. ETOMIDATE. [Concomitant]
     Active Substance: ETOMIDATE
  6. LACTULOSE. [Concomitant]
     Active Substance: LACTULOSE
  7. PROPRANOLOL [Concomitant]
     Active Substance: PROPRANOLOL\PROPRANOLOL HYDROCHLORIDE
  8. PANTOPRAZOLE SODIUM. [Concomitant]
     Active Substance: PANTOPRAZOLE SODIUM
  9. FENTANYL. [Concomitant]
     Active Substance: FENTANYL
  10. DACLATASVIR 60MG BMS [Suspect]
     Active Substance: DACLATASVIR
     Indication: HEPATITIS C
     Route: 048
     Dates: start: 20151217
  11. CEFTRIAXONE. [Concomitant]
     Active Substance: CEFTRIAXONE
  12. ONDANSETRON [Concomitant]
     Active Substance: ONDANSETRON
  13. ROCURONIUM [Concomitant]
     Active Substance: ROCURONIUM BROMIDE
  14. SOFOSBUVIR 400MG GILEAD [Suspect]
     Active Substance: SOFOSBUVIR
     Indication: HEPATITIS C
     Route: 048
     Dates: start: 20151217
  15. PROTONIX [Concomitant]
     Active Substance: PANTOPRAZOLE SODIUM

REACTIONS (5)
  - Anaemia [None]
  - Ascites [None]
  - Dizziness postural [None]
  - Dizziness [None]
  - Oesophageal varices haemorrhage [None]

NARRATIVE: CASE EVENT DATE: 20151218
